FAERS Safety Report 6580151-6 (Version None)
Quarter: 2010Q1

REPORT INFORMATION
  Report Type: 
  Country: None (occurrence: None)
  Receive Date: 20100203
  Receipt Date: 20100125
  Transmission Date: 20100710
  Serious: Yes (Other)
  Sender: FDA-Public Use
  Company Number: 2009029667

PATIENT
  Age: 15 Year
  Sex: Female

DRUGS (6)
  1. TRISENOX [Suspect]
     Indication: ACUTE PROMYELOCYTIC LEUKAEMIA
     Dosage: INTRAVENOUS DRIP; (AT 75% OF DOSE), INTRAVENOUS; (100% OF WEIGHT ADJUSTED DOSE.), INTRAVENOUS
     Route: 041
     Dates: start: 20091119, end: 20091211
  2. TRISENOX [Suspect]
     Indication: ACUTE PROMYELOCYTIC LEUKAEMIA
     Dosage: INTRAVENOUS DRIP; (AT 75% OF DOSE), INTRAVENOUS; (100% OF WEIGHT ADJUSTED DOSE.), INTRAVENOUS
     Route: 041
     Dates: start: 20091014
  3. TRISENOX [Suspect]
     Indication: ACUTE PROMYELOCYTIC LEUKAEMIA
     Dosage: INTRAVENOUS DRIP; (AT 75% OF DOSE), INTRAVENOUS; (100% OF WEIGHT ADJUSTED DOSE.), INTRAVENOUS
     Route: 041
     Dates: start: 20100104
  4. TRETINOIN [Suspect]
     Indication: ACUTE PROMYELOCYTIC LEUKAEMIA
     Dates: start: 20091014, end: 20091022
  5. TRETINOIN [Suspect]
     Indication: ACUTE PROMYELOCYTIC LEUKAEMIA
     Dates: start: 20091119, end: 20091211
  6. TRETINOIN [Suspect]
     Indication: ACUTE PROMYELOCYTIC LEUKAEMIA
     Dates: start: 20100104

REACTIONS (3)
  - H1N1 INFLUENZA [None]
  - HEPATOTOXICITY [None]
  - PNEUMONIA INFLUENZAL [None]
